FAERS Safety Report 6938922-X (Version None)
Quarter: 2010Q3

REPORT INFORMATION
  Report Type: 
  Country: None (occurrence: None)
  Receive Date: 20100824
  Receipt Date: 20100816
  Transmission Date: 20110219
  Serious: Yes (Other)
  Sender: FDA-Public Use
  Company Number: B0670158A

PATIENT
  Age: 60 Year
  Sex: Female

DRUGS (1)
  1. MALARONE [Suspect]
     Indication: PRODUCT USED FOR UNKNOWN INDICATION
     Route: 065
     Dates: start: 20100501, end: 20100601

REACTIONS (1)
  - MYELODYSPLASTIC SYNDROME [None]
